FAERS Safety Report 7472698-5 (Version None)
Quarter: 2011Q2

REPORT INFORMATION
  Report Type: 
  Country: None (occurrence: None)
  Receive Date: 20110502
  Receipt Date: 20110415
  Transmission Date: 20111010
  Serious: Yes (Hospitalization, Disabling, Other)
  Sender: FDA-Public Use
  Company Number: 2011SP000347

PATIENT
  Age: 30 Year
  Sex: Female
  Weight: 85.7298 kg

DRUGS (2)
  1. LISINOPRIL AND HYDROCHLOROTHIAZIDE [Concomitant]
  2. NUVARING [Suspect]
     Indication: CONTRACEPTION
     Dates: start: 20060701, end: 20081201

REACTIONS (7)
  - HEPATIC INFECTION [None]
  - IMPAIRED WORK ABILITY [None]
  - BEDRIDDEN [None]
  - DEEP VEIN THROMBOSIS [None]
  - DEPRESSION [None]
  - ECONOMIC PROBLEM [None]
  - MENTAL DISORDER [None]
